FAERS Safety Report 6458784-7 (Version None)
Quarter: 2009Q4

REPORT INFORMATION
  Report Type: 
  Country: None (occurrence: None)
  Receive Date: 20091127
  Receipt Date: 20091120
  Transmission Date: 20100525
  Serious: Yes (Hospitalization)
  Sender: FDA-Public Use
  Company Number: BR-BRISTOL-MYERS SQUIBB COMPANY-14870091

PATIENT
  Age: 82 Year
  Sex: Male
  Weight: 88 kg

DRUGS (5)
  1. APROVEL TABS 300 MG [Suspect]
     Indication: CARDIAC DISORDER
     Dosage: 1 DOSAGE FORM = 0.5 TABS AFTER DINNER.
     Route: 048
  2. ATLANSIL [Concomitant]
     Dosage: 1DF=1 TABS 200 MG AFTER LUNCH
     Route: 048
  3. DISGREN [Concomitant]
     Indication: CARDIAC DISORDER
     Dosage: 1DF=1 TABS 300 MG  TABS EVERY MOR
     Route: 048
  4. LASIX [Concomitant]
     Indication: DIURETIC THERAPY
     Dosage: 1DF=1 TABS EVERY MOR
     Route: 048
  5. SELOZOK [Concomitant]
     Indication: CARDIAC DISORDER
     Dosage: 1DF=1 TABS 25 MG EVERY MOR
     Route: 048

REACTIONS (3)
  - BLOOD CREATININE INCREASED [None]
  - CARDIAC DISORDER [None]
  - PLEURAL EFFUSION [None]
